FAERS Safety Report 10221631 (Version 1)
Quarter: 2014Q2

REPORT INFORMATION
  Report Type: Spontaneous
  Country: GB (occurrence: GB)
  Receive Date: 20140606
  Receipt Date: 20140606
  Transmission Date: 20141212
  Serious: Yes (Other)
  Sender: FDA-Public Use
  Company Number: GB-TEVA-484953ISR

PATIENT
  Age: 24 Year
  Sex: Female

DRUGS (1)
  1. OLANZAPINE [Suspect]
     Indication: BIPOLAR I DISORDER
     Route: 048
     Dates: start: 20140429, end: 20140512

REACTIONS (2)
  - Galactorrhoea [Recovering/Resolving]
  - Blood prolactin increased [Recovering/Resolving]
